FAERS Safety Report 23828367 (Version 1)
Quarter: 2024Q2

REPORT INFORMATION
  Report Type: Report from Study
  Country: CN (occurrence: CN)
  Receive Date: 20240508
  Receipt Date: 20240508
  Transmission Date: 20240715
  Serious: Yes (Other)
  Sender: FDA-Public Use
  Company Number: CN-UCBSA-2024022100

PATIENT

DRUGS (8)
  1. LEVETIRACETAM [Suspect]
     Active Substance: LEVETIRACETAM
     Indication: Cerebrovascular accident
     Dosage: UNK
  2. LEVETIRACETAM [Suspect]
     Active Substance: LEVETIRACETAM
     Indication: Craniocerebral injury
  3. LEVETIRACETAM [Suspect]
     Active Substance: LEVETIRACETAM
     Indication: Epilepsy
  4. LEVETIRACETAM [Suspect]
     Active Substance: LEVETIRACETAM
     Indication: Off label use
  5. LEVETIRACETAM [Suspect]
     Active Substance: LEVETIRACETAM
     Indication: Epilepsy
     Dosage: UNK
  6. LEVETIRACETAM [Suspect]
     Active Substance: LEVETIRACETAM
     Indication: Cerebrovascular accident
  7. LEVETIRACETAM [Suspect]
     Active Substance: LEVETIRACETAM
     Indication: Craniocerebral injury
  8. LEVETIRACETAM [Suspect]
     Active Substance: LEVETIRACETAM
     Indication: Off label use

REACTIONS (15)
  - Pneumonia [Unknown]
  - Renal impairment [Unknown]
  - Coagulopathy [Unknown]
  - Neurological symptom [Unknown]
  - Anaemia [Unknown]
  - Hyponatraemia [Unknown]
  - Full blood count decreased [Unknown]
  - Gastrointestinal disorder [Unknown]
  - Dermatitis allergic [Unknown]
  - Hepatic function abnormal [Unknown]
  - Electrolyte imbalance [Unknown]
  - Withdrawal syndrome [Unknown]
  - Urinary tract infection [Unknown]
  - Off label use [Unknown]
  - Drug effective for unapproved indication [Unknown]
